FAERS Safety Report 4933513-4 (Version None)
Quarter: 2006Q1

REPORT INFORMATION
  Report Type: 
  Country: None (occurrence: None)
  Receive Date: 20060306
  Receipt Date: 20060131
  Transmission Date: 20060701
  Serious: Yes (Hospitalization)
  Sender: FDA-Public Use
  Company Number: AU-BRISTOL-MYERS SQUIBB COMPANY-13264437

PATIENT
  Age: 57 Year
  Sex: Male

DRUGS (5)
  1. CISPLATIN [Suspect]
     Indication: GASTRIC CANCER
     Route: 042
     Dates: start: 20060109, end: 20060109
  2. FLUOROURACIL [Suspect]
     Indication: GASTRIC CANCER
     Route: 042
     Dates: start: 20060109, end: 20060114
  3. NEXIUM [Concomitant]
     Indication: HYPERCHLORHYDRIA
  4. TRAMAL [Concomitant]
     Indication: ANALGESIC EFFECT
     Route: 048
     Dates: start: 20051212
  5. EMEND [Concomitant]
     Indication: NAUSEA
     Route: 048
     Dates: start: 20060109

REACTIONS (5)
  - ANOREXIA [None]
  - DIARRHOEA [None]
  - OEDEMA PERIPHERAL [None]
  - ORAL CANDIDIASIS [None]
  - PYREXIA [None]
